FAERS Safety Report 9406183 (Version 1)
Quarter: 2013Q3

REPORT INFORMATION
  Report Type: Spontaneous
  Country: US (occurrence: US)
  Receive Date: 20130717
  Receipt Date: 20130717
  Transmission Date: 20140515
  Serious: Yes (Other)
  Sender: FDA-Public Use
  Company Number: US-PFIZER INC-2013205380

PATIENT
  Sex: Male

DRUGS (1)
  1. BOSULIF [Suspect]
     Dosage: UNK

REACTIONS (2)
  - Pancreatitis [Unknown]
  - Pancreatic enzymes increased [Unknown]
